FAERS Safety Report 20370325 (Version 1)
Quarter: 2022Q1

REPORT INFORMATION
  Report Type: Spontaneous
  Country: US (occurrence: None)
  Receive Date: 20220123
  Receipt Date: 20220123
  Transmission Date: 20220424
  Serious: No
  Sender: FDA-Public Use
  Company Number: None

PATIENT
  Age: 14 Year
  Sex: Female
  Weight: 56.7 kg

DRUGS (1)
  1. XULANE [Suspect]
     Active Substance: ETHINYL ESTRADIOL\NORELGESTROMIN
     Indication: Dysmenorrhoea
     Dosage: OTHER QUANTITY : 1 PATCH(ES);?OTHER FREQUENCY : ONCE A WEEK;?
     Route: 062
     Dates: start: 20210131, end: 20220120

REACTIONS (5)
  - Application site reaction [None]
  - Application site pruritus [None]
  - Application site swelling [None]
  - Application site vesicles [None]
  - Urticaria [None]

NARRATIVE: CASE EVENT DATE: 20220120
